FAERS Safety Report 9990833 (Version 1)
Quarter: 2014Q1

REPORT INFORMATION
  Report Type: Spontaneous
  Country: US (occurrence: US)
  Receive Date: 20140310
  Receipt Date: 20140310
  Transmission Date: 20141002
  Serious: No
  Sender: FDA-Public Use
  Company Number: US-ABBVIE-13P-163-1138436-00

PATIENT
  Age: 28 Year
  Sex: Female

DRUGS (2)
  1. HUMIRA [Suspect]
     Indication: PSORIASIS
     Route: 058
     Dates: start: 201307
  2. LABETALOL [Concomitant]
     Indication: HYPERTENSION

REACTIONS (2)
  - Hypoaesthesia [Unknown]
  - Paraesthesia [Unknown]
